FAERS Safety Report 6732284-9 (Version None)
Quarter: 2010Q2

REPORT INFORMATION
  Report Type: 
  Country: None (occurrence: None)
  Receive Date: 20100519
  Receipt Date: 20100513
  Transmission Date: 20101027
  Serious: Yes (Hospitalization)
  Sender: FDA-Public Use
  Company Number: B0653223A

PATIENT
  Age: 35 Year
  Sex: Male

DRUGS (2)
  1. LAMICTAL [Suspect]
     Indication: EPILEPSY
     Dosage: 175MG PER DAY
     Route: 048
     Dates: start: 20100214, end: 20100406
  2. DEPAKENE [Suspect]
     Indication: EPILEPSY
     Dosage: 200MG PER DAY
     Route: 048
     Dates: start: 20090101, end: 20100406

REACTIONS (3)
  - HYPERTRANSAMINASAEMIA [None]
  - PYREXIA [None]
  - RASH MACULO-PAPULAR [None]
